FAERS Safety Report 5905448-1 (Version None)
Quarter: 2008Q4

REPORT INFORMATION
  Report Type: 
  Country: None (occurrence: None)
  Receive Date: 20081001
  Receipt Date: 20081001
  Transmission Date: 20090506
  Serious: No
  Sender: FDA-Public Use
  Company Number: None

PATIENT
  Sex: Female
  Weight: 68.0396 kg

DRUGS (2)
  1. BUSPIRONE HCL [Suspect]
     Indication: ANXIETY
     Dosage: 10 MG QID PO
     Route: 048
     Dates: start: 20010928
  2. BUSPIRONE HCL [Suspect]
     Indication: ANXIETY
     Dates: start: 20080101

REACTIONS (1)
  - DRUG INEFFECTIVE [None]
